FAERS Safety Report 6907072-0 (Version None)
Quarter: 2010Q3

REPORT INFORMATION
  Report Type: 
  Country: None (occurrence: None)
  Receive Date: 20100804
  Receipt Date: 20080616
  Transmission Date: 20110219
  Serious: Yes (Hospitalization)
  Sender: FDA-Public Use
  Company Number: AU-PFIZER INC-2008046653

PATIENT
  Sex: Male

DRUGS (22)
  1. MARAVIROC [Suspect]
     Indication: HIV INFECTION
     Route: 048
     Dates: start: 20050905
  2. ATORVASTATIN [Concomitant]
     Dates: start: 20010101
  3. RANITIDINE [Concomitant]
     Route: 048
     Dates: start: 20010101
  4. COSOPT [Concomitant]
     Dates: start: 20010101
  5. LATANOPROST [Concomitant]
     Route: 031
     Dates: start: 20050101
  6. POLY-TEARS [Concomitant]
     Dates: start: 20050101
  7. VALACYCLOVIR [Concomitant]
     Route: 048
     Dates: start: 20020101
  8. ACETYLSALICYLIC ACID SRT [Concomitant]
     Dates: start: 20020101
  9. ALBUTEROL [Concomitant]
     Dates: start: 20050101
  10. FISH OIL [Concomitant]
     Route: 048
     Dates: start: 20030101
  11. ATAZANAVIR [Concomitant]
     Route: 048
     Dates: start: 20050601
  12. EFAVIRENZ [Concomitant]
     Route: 048
     Dates: start: 20050901
  13. COMBIVIR [Concomitant]
     Route: 048
     Dates: start: 20050101
  14. TENOFOVIR DISOPROXIL FUMARATE [Concomitant]
     Route: 048
     Dates: start: 20050101
  15. METOCLOPRAMIDE [Concomitant]
     Route: 048
     Dates: start: 20060101
  16. EFFEXOR [Concomitant]
     Dates: start: 20070901
  17. PANADOL [Concomitant]
     Dates: start: 20000101
  18. NEMDYN [Concomitant]
     Dates: start: 20060501
  19. ACETAMINOPHEN [Concomitant]
     Route: 048
     Dates: start: 19900101
  20. EFUDEX [Concomitant]
     Route: 061
     Dates: start: 20080101
  21. CELESTONE [Concomitant]
     Route: 061
     Dates: start: 20080101
  22. OXAZEPAM [Concomitant]
     Route: 048
     Dates: start: 20071001

REACTIONS (2)
  - MALIGNANT TUMOUR EXCISION [None]
  - SKIN NEOPLASM EXCISION [None]
